FAERS Safety Report 7267978-2 (Version None)
Quarter: 2011Q1

REPORT INFORMATION
  Report Type: 
  Country: None (occurrence: None)
  Receive Date: 20110201
  Receipt Date: 20110118
  Transmission Date: 20110831
  Serious: Yes (Death)
  Sender: FDA-Public Use
  Company Number: ES-WATSON-2011-01013

PATIENT
  Age: 12 Year
  Sex: Female

DRUGS (2)
  1. PENICILLIN G POTASSIUM [Suspect]
     Indication: BRONCHITIS
     Dosage: UNK
  2. IBUPROFEN [Suspect]
     Indication: BRONCHITIS
     Dosage: UNK

REACTIONS (3)
  - TOXIC EPIDERMAL NECROLYSIS [None]
  - DISTRIBUTIVE SHOCK [None]
  - SEPSIS [None]
